FAERS Safety Report 8101881-0 (Version None)
Quarter: 2012Q1

REPORT INFORMATION
  Report Type: 
  Country: None (occurrence: None)
  Receive Date: 20120131
  Receipt Date: 20120126
  Transmission Date: 20120608
  Serious: Yes (Hospitalization, Other)
  Sender: FDA-Public Use
  Company Number: JP-ABBOTT-11P-087-0874640-00

PATIENT
  Sex: Male
  Weight: 80.8 kg

DRUGS (5)
  1. LUVOX [Suspect]
     Indication: DEPRESSION
     Route: 048
  2. SEVOFLURANE [Suspect]
     Dates: start: 20111111, end: 20111111
  3. PHENYLEPHRINE HCL [Suspect]
     Indication: ANAESTHESIA
     Route: 041
     Dates: start: 20111111, end: 20111111
  4. PHENYLEPHRINE HCL [Suspect]
     Dosage: 0.05 MG X 2
     Route: 041
     Dates: start: 20111111, end: 20111111
  5. SEVOFLURANE [Suspect]
     Indication: ANAESTHESIA
     Dates: start: 20111111, end: 20111111

REACTIONS (1)
  - PRIAPISM [None]
